FAERS Safety Report 9932314 (Version 1)
Quarter: 2014Q1

REPORT INFORMATION
  Report Type: Spontaneous
  Country: US (occurrence: US)
  Receive Date: 20140228
  Receipt Date: 20140228
  Transmission Date: 20141002
  Serious: No
  Sender: FDA-Public Use
  Company Number: US-GLAXOSMITHKLINE-A0997693A

PATIENT
  Age: 36 Year
  Sex: Female
  Weight: 80.5 kg

DRUGS (7)
  1. LAMOTRIGINE [Suspect]
     Indication: ANXIETY
     Dosage: 150MG UNKNOWN
     Route: 048
     Dates: start: 201108
  2. LAMOTRIGINE [Suspect]
     Indication: ANXIETY
     Dosage: 150MG UNKNOWN
     Route: 048
     Dates: start: 201108
  3. PROZAC [Concomitant]
  4. FOLIC ACID [Concomitant]
  5. ZYRTEC [Concomitant]
  6. PRENATAL VITAMIN [Concomitant]
  7. EPA + DHA (NUTRITION SUPPLEMENT) [Concomitant]

REACTIONS (2)
  - Exposure during pregnancy [Unknown]
  - Live birth [Unknown]
